FAERS Safety Report 5738620-4 (Version None)
Quarter: 2008Q2

REPORT INFORMATION
  Report Type: 
  Country: None (occurrence: None)
  Receive Date: 20080515
  Receipt Date: 20080507
  Transmission Date: 20081010
  Serious: Yes (Life-Threatening, Other)
  Sender: FDA-Public Use
  Company Number: PHBS1997AU06161

PATIENT
  Age: 76 Year
  Sex: Female

DRUGS (7)
  1. FAMCICLOVIR [Suspect]
     Indication: HERPES ZOSTER
     Dosage: 750 MG, QD
     Route: 048
     Dates: start: 19971209, end: 19971216
  2. WARFARIN SODIUM [Interacting]
     Dosage: 2 MG, Q72H
     Dates: start: 19961001
  3. CALCITRIOL [Concomitant]
     Dosage: 0.2 MICROGRAM / DAY
  4. DIGOXIN [Concomitant]
     Dosage: 125 MICROGRAM / DAY
  5. ENALAPRIL MALEATE [Concomitant]
     Dosage: 20 MG, QD
  6. METHYLDOPA [Concomitant]
     Dosage: 750 MG, QD
  7. VERAPAMIL HYDROCHLORIDE [Concomitant]
     Dosage: 20 MG, QD

REACTIONS (2)
  - INTERNATIONAL NORMALISED RATIO INCREASED [None]
  - PROTHROMBIN LEVEL DECREASED [None]
